FAERS Safety Report 4547077-0 (Version None)
Quarter: 2005Q1

REPORT INFORMATION
  Report Type: 
  Country: None (occurrence: None)
  Receive Date: 20050105
  Receipt Date: 20041115
  Transmission Date: 20050727
  Serious: Yes (Hospitalization)
  Sender: FDA-Public Use
  Company Number: STA-AE-03-MTX-216

PATIENT
  Age: 61 Year
  Sex: Male

DRUGS (4)
  1. METHOTREXATE [Suspect]
     Indication: RHEUMATOID ARTHRITIS
     Dosage: 10 MG 1 X PER 1 WK ORAL
     Route: 048
     Dates: start: 19990402, end: 20030627
  2. ENBREL [Suspect]
     Indication: RHEUMATOID ARTHRITIS
     Dosage: 25 MG 2 X PER 1 WK, SC
     Route: 058
     Dates: start: 20021118, end: 20030606
  3. VIOXX [Concomitant]
  4. DARVOCET-N (DEXTROPROPOXYPHENE/PARACETAMOL) [Concomitant]

REACTIONS (12)
  - CHILLS [None]
  - DUODENITIS [None]
  - GASTRITIS [None]
  - LYMPHADENOPATHY [None]
  - LYMPHOMA [None]
  - METASTASIS [None]
  - MUCOSAL INFLAMMATION [None]
  - NECROSIS [None]
  - NEUTROPENIA [None]
  - NUCLEAR MAGNETIC RESONANCE IMAGING ABNORMAL [None]
  - PYREXIA [None]
  - SQUAMOUS CELL CARCINOMA [None]
